FAERS Safety Report 20980541 (Version 1)
Quarter: 2022Q2

REPORT INFORMATION
  Report Type: Spontaneous
  Country: FR (occurrence: FR)
  Receive Date: 20220620
  Receipt Date: 20220620
  Transmission Date: 20220721
  Serious: Yes (Other)
  Sender: FDA-Public Use
  Company Number: FR-SUN PHARMACEUTICAL INDUSTRIES LTD-2022R1-341114

PATIENT
  Age: 29 Year
  Sex: Male
  Weight: 99 kg

DRUGS (2)
  1. LITHIUM [Interacting]
     Active Substance: LITHIUM
     Indication: Schizoaffective disorder
     Dosage: 400 MILLIGRAM, DAILY
     Route: 065
  2. VALPROIC ACID [Interacting]
     Active Substance: VALPROIC ACID
     Indication: Schizoaffective disorder
     Dosage: 2000 MILLIGRAM, DAILY
     Route: 065

REACTIONS (2)
  - Hyperammonaemic encephalopathy [Recovering/Resolving]
  - Drug interaction [Unknown]
